FAERS Safety Report 4411226-5 (Version None)
Quarter: 2004Q2

REPORT INFORMATION
  Report Type: 
  Country: None (occurrence: None)
  Receive Date: 20040630
  Receipt Date: 20040517
  Transmission Date: 20050107
  Serious: No
  Sender: FDA-Public Use
  Company Number: 04P-163-0261048-00

PATIENT
  Age: 56 Year
  Sex: Male
  Weight: 77.1115 kg

DRUGS (11)
  1. HUMIRA [Suspect]
     Indication: RHEUMATOID ARTHRITIS
     Dosage: 40 MG, 1 IN 2 WK, SUBCUTANEOUS
     Route: 058
     Dates: start: 20040201
  2. CARVEDILOL [Concomitant]
  3. ENBREL [Concomitant]
  4. DIGOXIN [Concomitant]
  5. FUROSEMIDE [Concomitant]
  6. POTASSIUM CHLORIDE [Concomitant]
  7. FENOFIBRATE [Concomitant]
  8. ATORVASTATIN [Concomitant]
  9. FOLIC ACID [Concomitant]
  10. VICODIN [Concomitant]
  11. AMLODIPINE BESYLATE [Concomitant]

REACTIONS (3)
  - EYE PRURITUS [None]
  - EYE REDNESS [None]
  - FATIGUE [None]
